FAERS Safety Report 5102595-1 (Version None)
Quarter: 2006Q3

REPORT INFORMATION
  Report Type: 
  Country: None (occurrence: None)
  Receive Date: 20060907
  Receipt Date: 20060818
  Transmission Date: 20061208
  Serious: Yes (Hospitalization, Other)
  Sender: FDA-Public Use
  Company Number: GB200511002170

PATIENT
  Age: 47 Year
  Sex: Female
  Weight: 65 kg

DRUGS (8)
  1. FLUOXETINE [Suspect]
     Indication: MAJOR DEPRESSION
     Dosage: SEE IMAGE
     Dates: start: 20050725, end: 20050826
  2. FLUOXETINE [Suspect]
     Indication: MAJOR DEPRESSION
     Dosage: SEE IMAGE
     Dates: start: 20050826, end: 20050915
  3. QUETIAPINE FUMARATE [Concomitant]
  4. PREDNISOLONE [Concomitant]
  5. AUGMENTIN '125' [Concomitant]
  6. TAZOCIN (PIPERACILLIN SODIUM, TAZOBACTAM SODIUM) [Concomitant]
  7. MONTELUKAST (MONTELUKAST) [Concomitant]
  8. CLARITHROMYCIN [Concomitant]

REACTIONS (5)
  - BRONCHIECTASIS [None]
  - DRUG DOSE OMISSION [None]
  - LUNG NEOPLASM [None]
  - OBSTRUCTIVE AIRWAYS DISORDER [None]
  - PULMONARY EOSINOPHILIA [None]
